FAERS Safety Report 21759377 (Version 1)
Quarter: 2022Q4

REPORT INFORMATION
  Report Type: Report from Study
  Country: US (occurrence: None)
  Receive Date: 20221221
  Receipt Date: 20221221
  Transmission Date: 20230113
  Serious: Yes (Other)
  Sender: FDA-Public Use
  Company Number: US-ROCHE-2504690

PATIENT
  Age: 70 Year
  Sex: Female

DRUGS (2)
  1. ATEZOLIZUMAB [Suspect]
     Active Substance: ATEZOLIZUMAB
     Indication: Biliary neoplasm
     Dosage: PATIENT RECEIVE ATEZOLIZUMAB IV OVER 30-60 MINUTES ON DAYS 1 AND 15
     Route: 041
  2. COBIMETINIB [Suspect]
     Active Substance: COBIMETINIB
     Indication: Biliary neoplasm
     Route: 048

REACTIONS (6)
  - Sepsis [Unknown]
  - Headache [Unknown]
  - Blood alkaline phosphatase increased [Unknown]
  - Anaemia [Unknown]
  - Biliary obstruction [Unknown]
  - Hyperthyroidism [Unknown]
